FAERS Safety Report 6708594-8 (Version None)
Quarter: 2010Q2

REPORT INFORMATION
  Report Type: 
  Country: None (occurrence: None)
  Receive Date: 20100428
  Receipt Date: 20100304
  Transmission Date: 20101027
  Serious: No
  Sender: FDA-Public Use
  Company Number: GandW FILE C-10-014

PATIENT
  Sex: Female

DRUGS (1)
  1. TRIPLE ANTIBIOTIC OINTMENT PLUS [Suspect]
     Indication: EMERGENCY CARE

REACTIONS (2)
  - DRUG INEFFECTIVE [None]
  - PRODUCT QUALITY ISSUE [None]
